FAERS Safety Report 23415412 (Version 1)
Quarter: 2024Q1

REPORT INFORMATION
  Report Type: Spontaneous
  Country: CA (occurrence: CA)
  Receive Date: 20240118
  Receipt Date: 20240118
  Transmission Date: 20240410
  Serious: Yes (Life-Threatening, Hospitalization, Disabling)
  Sender: FDA-Public Use
  Company Number: CA-CHEPLA-2024000568

PATIENT
  Age: 74 Year
  Sex: Female

DRUGS (16)
  1. CAPECITABINE [Suspect]
     Active Substance: CAPECITABINE
     Dosage: 2 EVERY 1 DAYS?DAILY DOSE: 2500 MILLIGRAM
     Route: 048
  2. ACYCLOVIR [Concomitant]
     Active Substance: ACYCLOVIR
  3. AMLODIPINE [Concomitant]
     Active Substance: AMLODIPINE BESYLATE
  4. ERTAPENEM [Concomitant]
     Active Substance: ERTAPENEM
     Dosage: POWDER FOR SOLUTION
  5. FILGRASTIM [Concomitant]
     Active Substance: FILGRASTIM
  6. FLAGYL [Concomitant]
     Active Substance: METRONIDAZOLE\METRONIDAZOLE HYDROCHLORIDE
  7. FRAGMIN [Concomitant]
     Active Substance: DALTEPARIN SODIUM
     Dosage: SOLUTION INTRAVENOUS
  8. GABAPENTIN [Concomitant]
     Active Substance: GABAPENTIN
  9. LABETALOL [Concomitant]
     Active Substance: LABETALOL\LABETALOL HYDROCHLORIDE
  10. METHIMAZOLE [Concomitant]
     Active Substance: METHIMAZOLE
  11. METOCLOPRAMIDE [Concomitant]
     Active Substance: METOCLOPRAMIDE
  12. MORPHINE [Concomitant]
     Active Substance: MORPHINE
  13. NYSTATIN [Concomitant]
     Active Substance: NYSTATIN
  14. PRAVASTATIN SODIUM [Concomitant]
     Active Substance: PRAVASTATIN SODIUM
  15. RANITIDINE [Concomitant]
     Active Substance: RANITIDINE
  16. CANDESARTAN [Concomitant]
     Active Substance: CANDESARTAN

REACTIONS (4)
  - Decreased appetite [Unknown]
  - Pancytopenia [Unknown]
  - Pneumonia [Unknown]
  - Respiratory failure [Unknown]
